FAERS Safety Report 24081512 (Version 1)
Quarter: 2024Q3

REPORT INFORMATION
  Report Type: Spontaneous
  Country: US (occurrence: US)
  Receive Date: 20240712
  Receipt Date: 20240712
  Transmission Date: 20241017
  Serious: No
  Sender: SANDOZ
  Company Number: US-BAUSCHBL-2024BNL003132

PATIENT
  Sex: Male

DRUGS (2)
  1. PREDNISOLONE [Suspect]
     Active Substance: PREDNISOLONE
     Indication: Corneal disorder
     Dosage: 2 DRP, Q6H
     Route: 047
  2. XIIDRA [Suspect]
     Active Substance: LIFITEGRAST
     Indication: Dry eye
     Dosage: UNK
     Route: 047

REACTIONS (4)
  - Dyspnoea [Unknown]
  - Eye irritation [Unknown]
  - Vision blurred [Unknown]
  - Inappropriate schedule of product administration [Unknown]
